FAERS Safety Report 11004949 (Version 1)
Quarter: 2015Q2

REPORT INFORMATION
  Report Type: Spontaneous
  Country: US (occurrence: None)
  Receive Date: 20150408
  Receipt Date: 20150408
  Transmission Date: 20150821
  Serious: Yes (Other)
  Sender: FDA-Public Use
  Company Number: None

PATIENT
  Age: 38 Year
  Sex: Female

DRUGS (1)
  1. 0.12% CHLORHEXIDINE [Suspect]
     Active Substance: CHLORHEXIDINE
     Indication: IRRIGATION THERAPY
     Route: 048
     Dates: start: 20150406, end: 20150406

REACTIONS (3)
  - Lip swelling [None]
  - Hypersensitivity [None]
  - Skin reaction [None]

NARRATIVE: CASE EVENT DATE: 20150407
